FAERS Safety Report 14777712 (Version 1)
Quarter: 2018Q2

REPORT INFORMATION
  Report Type: Spontaneous
  Country: US (occurrence: US)
  Receive Date: 20180419
  Receipt Date: 20180419
  Transmission Date: 20180711
  Serious: No
  Sender: FDA-Public Use
  Company Number: US-JNJFOC-20180332599

PATIENT
  Age: 89 Year
  Sex: Female

DRUGS (2)
  1. TYLENOL EXTRA STRENGTH [Suspect]
     Active Substance: ACETAMINOPHEN
     Indication: PAIN
     Route: 048
  2. WARFARIN [Concomitant]
     Active Substance: WARFARIN
     Indication: CARDIAC ASSISTANCE DEVICE USER
     Route: 065

REACTIONS (5)
  - Eructation [Not Recovered/Not Resolved]
  - Dysphagia [Not Recovered/Not Resolved]
  - Inappropriate schedule of drug administration [Unknown]
  - Throat irritation [Not Recovered/Not Resolved]
  - Contraindicated product administered [Unknown]
